FAERS Safety Report 10190490 (Version 1)
Quarter: 2014Q2

REPORT INFORMATION
  Report Type: Spontaneous
  Country: US (occurrence: US)
  Receive Date: 20140522
  Receipt Date: 20140522
  Transmission Date: 20141212
  Serious: No
  Sender: FDA-Public Use
  Company Number: US-SA-2013SA104692

PATIENT
  Age: 44 Year
  Sex: 0
  Weight: 68 kg

DRUGS (4)
  1. ELOXATIN [Suspect]
     Route: 065
  2. AVASTIN [Suspect]
     Route: 065
  3. OXALIPLATIN [Suspect]
     Route: 065
  4. TYLENOL [Concomitant]
     Route: 065

REACTIONS (2)
  - Anal fistula [Unknown]
  - Muscle spasms [Recovered/Resolved]
